FAERS Safety Report 8557132-6 (Version None)
Quarter: 2012Q3

REPORT INFORMATION
  Report Type: 
  Country: None (occurrence: None)
  Receive Date: 20120801
  Receipt Date: 20120724
  Transmission Date: 20120928
  Serious: Yes (Hospitalization)
  Sender: FDA-Public Use
  Company Number: BE-ABBOTT-12P-013-0959763-00

PATIENT
  Sex: Female
  Weight: 80 kg

DRUGS (11)
  1. METFORMIN HCL [Concomitant]
     Indication: DIABETES MELLITUS
  2. CLOPIDOGREL [Concomitant]
     Indication: THROMBOSIS PROPHYLAXIS
  3. LORAZEPAM [Concomitant]
     Indication: INSOMNIA
  4. HUMIRA [Suspect]
     Indication: RHEUMATOID ARTHRITIS
     Dates: start: 20110217, end: 20120212
  5. HUMIRA [Suspect]
     Dates: start: 20120314
  6. PROPRANOLOL HYDROCHLORIDE [Concomitant]
     Indication: HYPERTENSION
  7. ALDACTAZINE [Concomitant]
     Indication: DIURETIC THERAPY
  8. GLIMEPIRIDE [Concomitant]
     Indication: DIABETES MELLITUS
  9. FOLAVIT [Concomitant]
     Indication: VITAMIN SUPPLEMENTATION
  10. TRAZODONE HCL [Concomitant]
     Indication: PAIN
     Dates: start: 20080321
  11. SIMVASTATIN [Concomitant]
     Indication: CARDIOVASCULAR EVENT PROPHYLAXIS

REACTIONS (2)
  - URINARY TRACT INFECTION [None]
  - OSTEOARTHRITIS [None]
